FAERS Safety Report 16910858 (Version 1)
Quarter: 2019Q4

REPORT INFORMATION
  Report Type: Spontaneous
  Country: US (occurrence: US)
  Receive Date: 20191012
  Receipt Date: 20191012
  Transmission Date: 20200122
  Serious: No
  Sender: FDA-Public Use
  Company Number: US-BION-008045

PATIENT

DRUGS (1)
  1. BIONPHARMA^S PROGESTERONE [Suspect]
     Active Substance: PROGESTERONE
     Indication: PRODUCT USED FOR UNKNOWN INDICATION

REACTIONS (4)
  - Product substitution issue [Unknown]
  - Vertigo [Unknown]
  - Product taste abnormal [Unknown]
  - Product odour abnormal [Unknown]
